FAERS Safety Report 19953721 (Version 3)
Quarter: 2022Q1

REPORT INFORMATION
  Report Type: Report from Study
  Country: US (occurrence: None)
  Receive Date: 20211014
  Receipt Date: 20220125
  Transmission Date: 20220423
  Serious: Yes (Death, Hospitalization)
  Sender: FDA-Public Use
  Company Number: US-ROCHE-2932332

PATIENT
  Age: 81 Year
  Sex: Male
  Weight: 74.8 kg

DRUGS (3)
  1. ATEZOLIZUMAB [Suspect]
     Active Substance: ATEZOLIZUMAB
     Indication: Bladder transitional cell carcinoma
     Dosage: MOST RECENT DOSE: 13/APR/2021
     Route: 041
     Dates: start: 20210209
  2. CISPLATIN [Suspect]
     Active Substance: CISPLATIN
     Indication: Bladder transitional cell carcinoma
     Dosage: MOST RECENT DOSE: 23/MAR/2021
     Route: 042
     Dates: start: 20210209
  3. BACTRIM [Suspect]
     Active Substance: SULFAMETHOXAZOLE\TRIMETHOPRIM
     Indication: Product used for unknown indication
     Route: 065

REACTIONS (1)
  - Exfoliative rash [Fatal]

NARRATIVE: CASE EVENT DATE: 20210423
